FAERS Safety Report 25927653 (Version 1)
Quarter: 2025Q4

REPORT INFORMATION
  Report Type: Spontaneous
  Country: CN (occurrence: CN)
  Receive Date: 20251016
  Receipt Date: 20251016
  Transmission Date: 20260118
  Serious: Yes (Hospitalization)
  Sender: COHERUS
  Company Number: CN-SHANGHAI JUNSHI BIOSCIENCES CO., LTD.-CN2025016025

PATIENT

DRUGS (6)
  1. TORIPALIMAB [Suspect]
     Active Substance: TORIPALIMAB
     Indication: Tongue neoplasm malignant stage unspecified
     Dosage: 240 MG, Q3W
     Route: 041
     Dates: start: 20250730, end: 20250730
  2. DOCETAXEL [Suspect]
     Active Substance: DOCETAXEL
     Indication: Tongue neoplasm malignant stage unspecified
     Dosage: 100 MG, Q3W
     Route: 041
     Dates: start: 20250730, end: 20250730
  3. CISPLATIN [Suspect]
     Active Substance: CISPLATIN
     Indication: Tongue neoplasm malignant stage unspecified
     Dosage: 100 MG, Q3W
     Route: 041
     Dates: start: 20250730, end: 20250730
  4. SODIUM CHLORIDE [Concomitant]
     Active Substance: SODIUM CHLORIDE
     Indication: Medication dilution
     Dosage: 500 ML, Q3W
     Route: 041
     Dates: start: 20250730, end: 20250730
  5. SODIUM CHLORIDE [Concomitant]
     Active Substance: SODIUM CHLORIDE
     Indication: Medication dilution
     Dosage: 250 ML, Q3W
     Route: 041
     Dates: start: 20250730, end: 20250730
  6. SODIUM CHLORIDE [Concomitant]
     Active Substance: SODIUM CHLORIDE
     Indication: Medication dilution
     Dosage: 100 ML, Q3W
     Route: 041
     Dates: start: 20250730, end: 20250730

REACTIONS (1)
  - Myelosuppression [Recovering/Resolving]

NARRATIVE: CASE EVENT DATE: 20250805
